FAERS Safety Report 8378854-6 (Version None)
Quarter: 2012Q2

REPORT INFORMATION
  Report Type: 
  Country: None (occurrence: None)
  Receive Date: 20120523
  Receipt Date: 20120514
  Transmission Date: 20120825
  Serious: Yes (Hospitalization, Other)
  Sender: FDA-Public Use
  Company Number: DE-BRISTOL-MYERS SQUIBB COMPANY-16536039

PATIENT
  Age: 60 Year
  Sex: Female

DRUGS (7)
  1. ABILIFY [Interacting]
     Indication: PERSONALITY DISORDER
     Dosage: 15MG:NOV10 TO 30NOV11 10MG:DEC11 TO 27JAN12 5MG:FEB12
     Dates: start: 20101101
  2. BUPROPION HYDROCHLORIDE [Interacting]
     Dosage: TRADE: ELONTIL
     Dates: start: 20110401
  3. LITHIUM CARBONATE [Suspect]
     Dosage: FREQUENCY: 1/2-0-1
     Dates: start: 20111101
  4. LEVOTHYROXINE SODIUM [Concomitant]
     Dates: start: 20110301
  5. PAROXETINE [Suspect]
     Dosage: 1DF:40 UNITS NOS
     Dates: start: 20100201, end: 20110501
  6. ABILIFY [Interacting]
     Indication: BIPOLAR DISORDER
     Dosage: 15MG:NOV10 TO 30NOV11 10MG:DEC11 TO 27JAN12 5MG:FEB12
     Dates: start: 20101101
  7. LYRICA [Suspect]
     Dosage: FREQUENCY: 1-1-1
     Dates: start: 20100201

REACTIONS (6)
  - PELVIC VENOUS THROMBOSIS [None]
  - RESTLESSNESS [None]
  - THROMBOSIS [None]
  - TREMOR [None]
  - DRUG INTERACTION [None]
  - MUSCLE SPASMS [None]
